FAERS Safety Report 24620927 (Version 1)
Quarter: 2024Q4

REPORT INFORMATION
  Report Type: Spontaneous
  Country: IL (occurrence: None)
  Receive Date: 20241113
  Receipt Date: 20241113
  Transmission Date: 20250114
  Serious: Yes (Disabling)
  Sender: Public
  Company Number: None

PATIENT
  Age: 27 Year
  Sex: Male
  Weight: 72 kg

DRUGS (6)
  1. MULTIHANCE [Suspect]
     Active Substance: GADOBENATE DIMEGLUMINE
  2. AMITRIPTYLINE [Suspect]
     Active Substance: AMITRIPTYLINE
  3. VITAMIN C [Concomitant]
     Active Substance: ASCORBIC ACID
  4. MAGNESIUM [Concomitant]
     Active Substance: MAGNESIUM
  5. COLLAGEN [Concomitant]
     Active Substance: COLLAGEN
  6. VITAMIN D [Concomitant]
     Active Substance: VITAMIN D NOS

REACTIONS (8)
  - Procedural nausea [None]
  - Neuralgia [None]
  - Pruritus [None]
  - Pain in extremity [None]
  - Neuropathy peripheral [None]
  - Drug screen positive [None]
  - Drug level increased [None]
  - Contrast media reaction [None]

NARRATIVE: CASE EVENT DATE: 20240826
